FAERS Safety Report 4295617-1 (Version None)
Quarter: 2004Q1

REPORT INFORMATION
  Report Type: 
  Country: None (occurrence: None)
  Receive Date: 20040216
  Receipt Date: 20030729
  Transmission Date: 20041129
  Serious: Yes (Hospitalization, Other)
  Sender: FDA-Public Use
  Company Number: US-GLAXOSMITHKLINE-A0418984A

PATIENT
  Age: 37 Year
  Sex: Female
  Weight: 83 kg

DRUGS (4)
  1. PAXIL [Suspect]
     Indication: MAJOR DEPRESSION
     Route: 065
  2. TRAZODONE HCL [Concomitant]
     Indication: INSOMNIA
     Dosage: 50MG AT NIGHT
     Route: 048
  3. PROTONIX [Concomitant]
     Dosage: 40MG IN THE MORNING
     Route: 048
  4. SPIRONOLACTONE [Concomitant]
     Dosage: 25MG TWICE PER DAY
     Route: 048

REACTIONS (2)
  - DEPRESSION [None]
  - PYREXIA [None]
